FAERS Safety Report 6360017-7 (Version None)
Quarter: 2009Q3

REPORT INFORMATION
  Report Type: 
  Country: None (occurrence: None)
  Receive Date: 20090917
  Receipt Date: 20090908
  Transmission Date: 20100115
  Serious: Yes (Other)
  Sender: FDA-Public Use
  Company Number: PHEH2008US02651

PATIENT
  Sex: Female
  Weight: 66 kg

DRUGS (10)
  1. ZOMETA [Suspect]
     Dosage: 4 MG, QW3
     Dates: start: 20010101
  2. FOSAMAX [Concomitant]
  3. PROZAC [Concomitant]
  4. LEVOXYL [Concomitant]
  5. AROMASIN [Concomitant]
     Dosage: 25 MG, QD
  6. ZOLOFT [Concomitant]
     Dosage: 50 MG, QD
  7. SYNTHROID [Concomitant]
  8. VITAMIN E [Concomitant]
  9. MULTI-VITAMINS [Concomitant]
  10. AMBIEN [Concomitant]

REACTIONS (21)
  - ANHEDONIA [None]
  - ANXIETY [None]
  - ARTHRITIS [None]
  - ARTIFICIAL CROWN PROCEDURE [None]
  - BONE DISORDER [None]
  - CHEST PAIN [None]
  - DISABILITY [None]
  - EYE IRRITATION [None]
  - FATIGUE [None]
  - GENERAL PHYSICAL HEALTH DETERIORATION [None]
  - HEADACHE [None]
  - IMPAIRED HEALING [None]
  - METASTASES TO BONE [None]
  - NEUROPATHY PERIPHERAL [None]
  - OSTEONECROSIS [None]
  - PAIN [None]
  - PERIODONTITIS [None]
  - SPINAL OSTEOARTHRITIS [None]
  - SWELLING [None]
  - TOOTH EXTRACTION [None]
  - WEIGHT DECREASED [None]
